FAERS Safety Report 20819307 (Version 1)
Quarter: 2022Q2

REPORT INFORMATION
  Report Type: Spontaneous
  Country: US (occurrence: US)
  Receive Date: 20220512
  Receipt Date: 20220512
  Transmission Date: 20220720
  Serious: No
  Sender: FDA-Public Use
  Company Number: US-VERTEX PHARMACEUTICALS-2022-007039

PATIENT
  Age: 33 Year
  Sex: Female

DRUGS (4)
  1. TRIKAFTA [Suspect]
     Active Substance: ELEXACAFTOR\IVACAFTOR\TEZACAFTOR
     Indication: Cystic fibrosis
     Dosage: UNK
     Route: 048
  2. TRIKAFTA [Suspect]
     Active Substance: ELEXACAFTOR\IVACAFTOR\TEZACAFTOR
     Dosage: OFF-LABEL ADJUSTED DOSE (ELEXA 50MG/TEZ 25MG/IVA 37.5MG ONCE DAILY, NO EVENING IVA DOSE)
     Route: 048
  3. URSODIOL [Concomitant]
     Active Substance: URSODIOL
     Dosage: 300 MG, BID
  4. VENLAFAXINE [Concomitant]
     Active Substance: VENLAFAXINE HYDROCHLORIDE
     Dosage: 37.5 MG, QD

REACTIONS (1)
  - Hypertransaminasaemia [Unknown]
